FAERS Safety Report 4623054-6 (Version None)
Quarter: 2005Q1

REPORT INFORMATION
  Report Type: 
  Country: None (occurrence: None)
  Receive Date: 20050330
  Receipt Date: 20050318
  Transmission Date: 20050727
  Serious: Yes (Hospitalization, Other)
  Sender: FDA-Public Use
  Company Number: JP-BRISTOL-MYERS SQUIBB COMPANY-12912085

PATIENT
  Age: 53 Year
  Sex: Male

DRUGS (19)
  1. EFAVIRENZ CAPS 600 MG [Suspect]
     Indication: HIV INFECTION
     Route: 048
     Dates: start: 20030822, end: 20031004
  2. ZERIT [Suspect]
     Indication: HIV INFECTION
     Route: 048
     Dates: start: 20030822, end: 20031004
  3. EPIVIR [Suspect]
     Indication: HIV INFECTION
     Route: 048
     Dates: start: 20030822, end: 20031004
  4. BAKTAR [Suspect]
     Indication: INFECTION PROPHYLAXIS
     Route: 048
     Dates: start: 20030822, end: 20031004
  5. DENOSINE [Concomitant]
     Dates: start: 20030911, end: 20030930
  6. CLARITH [Concomitant]
     Dates: start: 20030926, end: 20030930
  7. AMOBAN [Concomitant]
     Dates: start: 20030822, end: 20031004
  8. TAKEPRON [Concomitant]
     Dates: start: 20030827, end: 20030925
  9. VALTREX [Concomitant]
     Dates: start: 20030827, end: 20031004
  10. MAGNESIUM OXIDE [Concomitant]
     Dates: start: 20030822, end: 20031004
  11. PURSENNID [Concomitant]
     Dates: start: 20030822, end: 20031004
  12. DIFLUCAN [Concomitant]
     Dates: start: 20030906, end: 20031004
  13. VOLTAREN [Concomitant]
     Dates: start: 20030822, end: 20031001
  14. ULCERLMIN [Concomitant]
     Dates: start: 20030822, end: 20031001
  15. EBUTOL [Concomitant]
     Dates: start: 20030926, end: 20031004
  16. RIMACTANE [Concomitant]
     Dates: start: 20030926, end: 20031004
  17. AMIKACIN SULFATE [Concomitant]
     Dates: start: 20030926, end: 20030930
  18. ZITHROMAC [Concomitant]
     Dates: start: 20031001, end: 20031004
  19. CIPROXAN [Concomitant]
     Dates: start: 20031001, end: 20031004

REACTIONS (7)
  - BLOOD CREATININE INCREASED [None]
  - BLOOD UREA INCREASED [None]
  - EOSINOPHIL COUNT INCREASED [None]
  - HAEMODIALYSIS [None]
  - LYMPHOCYTE COUNT INCREASED [None]
  - NEUTROPHIL COUNT DECREASED [None]
  - RENAL FAILURE ACUTE [None]
